FAERS Safety Report 13389371 (Version 3)
Quarter: 2017Q2

REPORT INFORMATION
  Report Type: Spontaneous
  Country: US (occurrence: US)
  Receive Date: 20170331
  Receipt Date: 20170509
  Transmission Date: 20170830
  Serious: Yes (Other)
  Sender: FDA-Public Use
  Company Number: US-CELGENEUS-USA-2017037848

PATIENT
  Age: 51 Year
  Sex: Female

DRUGS (2)
  1. THALOMID [Suspect]
     Active Substance: THALIDOMIDE
     Indication: OFF LABEL USE
  2. THALOMID [Suspect]
     Active Substance: THALIDOMIDE
     Indication: MYCOSIS FUNGOIDES
     Dosage: 50 MILLIGRAM
     Route: 048
     Dates: start: 20170203

REACTIONS (11)
  - Pain [Recovered/Resolved]
  - Lacrimation increased [Recovered/Resolved]
  - Swelling [Recovered/Resolved]
  - Peripheral swelling [Not Recovered/Not Resolved]
  - Haemoptysis [Recovered/Resolved]
  - Fluid retention [Not Recovered/Not Resolved]
  - Rhinorrhoea [Recovered/Resolved]
  - Epistaxis [Recovered/Resolved]
  - Fatigue [Recovered/Resolved]
  - Nausea [Recovered/Resolved]
  - Influenza like illness [Recovered/Resolved]

NARRATIVE: CASE EVENT DATE: 20170307
